FAERS Safety Report 9007050 (Version 1)
Quarter: 2013Q1

REPORT INFORMATION
  Report Type: Spontaneous
  Country: US (occurrence: US)
  Receive Date: 20130110
  Receipt Date: 20130110
  Transmission Date: 20140127
  Serious: Yes (Death)
  Sender: FDA-Public Use
  Company Number: US-PFIZER INC-2013007423

PATIENT
  Age: 39 Year
  Sex: Female

DRUGS (5)
  1. DESVENLAFAXINE SUCCINATE MONOHYDRATE [Suspect]
     Dosage: UNK
     Route: 048
  2. ARIPIPRAZOLE [Suspect]
     Dosage: UNK
  3. BUPROPION [Suspect]
     Dosage: UNK
     Route: 048
  4. METOPROLOL [Suspect]
     Dosage: UNK
     Route: 048
  5. ASPIRIN\BUTALBITAL\CAFFEINE [Suspect]
     Dosage: UNK
     Route: 048

REACTIONS (3)
  - Completed suicide [Fatal]
  - Intentional drug misuse [None]
  - Toxicity to various agents [None]
